FAERS Safety Report 22219265 (Version 1)
Quarter: 2023Q2

REPORT INFORMATION
  Report Type: Spontaneous
  Country: BG (occurrence: BG)
  Receive Date: 20230417
  Receipt Date: 20230417
  Transmission Date: 20230721
  Serious: Yes (Other)
  Sender: FDA-Public Use
  Company Number: BG-002147023-NVSC2023BG069347

PATIENT
  Age: 52 Year
  Sex: Female

DRUGS (2)
  1. EPIRUBICIN [Suspect]
     Active Substance: EPIRUBICIN
     Indication: Breast cancer
     Dosage: 90 MILLIGRAM/SQ. METER
     Route: 065
     Dates: start: 201805
  2. CYCLOPHOSPHAMIDE [Suspect]
     Active Substance: CYCLOPHOSPHAMIDE
     Indication: Breast cancer
     Dosage: 600 MILLIGRAM/SQ. METER
     Route: 065
     Dates: start: 201805

REACTIONS (2)
  - Breast cancer [Unknown]
  - Malignant neoplasm progression [Unknown]

NARRATIVE: CASE EVENT DATE: 20190101
